FAERS Safety Report 4313146-3 (Version None)
Quarter: 2004Q1

REPORT INFORMATION
  Report Type: 
  Country: None (occurrence: None)
  Receive Date: 20040308
  Receipt Date: 20031110
  Transmission Date: 20041129
  Serious: Yes (Hospitalization)
  Sender: FDA-Public Use
  Company Number: 200410630JP

PATIENT
  Age: 66 Year
  Sex: Female
  Weight: 44.7 kg

DRUGS (8)
  1. ARAVA [Suspect]
     Indication: RHEUMATOID ARTHRITIS
     Route: 048
     Dates: start: 20031011, end: 20031121
  2. PREDONINE [Concomitant]
     Indication: RHEUMATOID ARTHRITIS
     Route: 048
  3. RHEUMATREX [Concomitant]
     Indication: RHEUMATOID ARTHRITIS
     Route: 048
     Dates: end: 20031008
  4. FOLIAMIN [Concomitant]
     Indication: RHEUMATOID ARTHRITIS
     Route: 048
     Dates: end: 20031009
  5. ONE-ALPHA [Concomitant]
     Indication: OSTEOPOROSIS
     Route: 048
  6. SOLETON [Concomitant]
     Indication: RHEUMATOID ARTHRITIS
     Route: 048
  7. GEFANIL [Concomitant]
     Indication: GASTRITIS
     Route: 048
  8. AZULFIDINE [Concomitant]
     Indication: RHEUMATOID ARTHRITIS
     Route: 048
     Dates: end: 20031010

REACTIONS (3)
  - BLOOD ALBUMIN DECREASED [None]
  - BLOOD PRESSURE INCREASED [None]
  - NEPHROTIC SYNDROME [None]
